FAERS Safety Report 6162894-1 (Version None)
Quarter: 2009Q2

REPORT INFORMATION
  Report Type: 
  Country: None (occurrence: None)
  Receive Date: 20090421
  Receipt Date: 20090116
  Transmission Date: 20091009
  Serious: No
  Sender: FDA-Public Use
  Company Number: US-ASTRAZENECA-2009UW01664

PATIENT
  Sex: Female

DRUGS (1)
  1. TOPROL-XL [Suspect]
     Dosage: UNKNOWN
     Route: 048

REACTIONS (5)
  - FIBROMYALGIA [None]
  - LARYNGITIS [None]
  - MUSCULOSKELETAL PAIN [None]
  - NASOPHARYNGITIS [None]
  - PERIPHERAL COLDNESS [None]
